FAERS Safety Report 5676102-9 (Version None)
Quarter: 2008Q1

REPORT INFORMATION
  Report Type: 
  Country: None (occurrence: None)
  Receive Date: 20080321
  Receipt Date: 20080314
  Transmission Date: 20080703
  Serious: No
  Sender: FDA-Public Use
  Company Number: US-BAXTER-2008BH000382

PATIENT
  Age: 10 Year
  Sex: Male
  Weight: 20 kg

DRUGS (9)
  1. HEPARIN SODIUM [Suspect]
     Indication: PROPHYLAXIS
     Route: 040
     Dates: start: 20070707, end: 20080104
  2. HEPARIN SODIUM [Suspect]
     Route: 040
     Dates: start: 20070707, end: 20080104
  3. EPOGEN [Concomitant]
     Indication: ANAEMIA
     Route: 058
     Dates: start: 20050216
  4. PHOSLO [Concomitant]
     Indication: HYPERPHOSPHATAEMIA
     Route: 065
     Dates: start: 20070227
  5. RENAGEL [Concomitant]
     Indication: HYPERPHOSPHATAEMIA
     Route: 048
     Dates: start: 20050216
  6. BICITRA [Concomitant]
     Indication: ACIDOSIS
     Route: 048
     Dates: start: 20070814
  7. ENALAPRIL MALEATE [Concomitant]
     Indication: HYPERTENSION
     Route: 048
     Dates: start: 20050216
  8. RENAL VITAMIN [Concomitant]
     Indication: MEDICAL DIET
     Dosage: DOSE UNIT:UNKNOWN
     Route: 048
     Dates: start: 20070320
  9. FERRLECIT [Concomitant]
     Indication: ANAEMIA
     Route: 042
     Dates: start: 20071001

REACTIONS (3)
  - ANAPHYLACTIC REACTION [None]
  - HYPOTENSION [None]
  - TACHYCARDIA [None]
